FAERS Safety Report 7768558-2 (Version None)
Quarter: 2011Q3

REPORT INFORMATION
  Report Type: 
  Country: None (occurrence: None)
  Receive Date: 20110922
  Receipt Date: 20100914
  Transmission Date: 20111222
  Serious: No
  Sender: FDA-Public Use
  Company Number: US-ASTRAZENECA-2010SE43106

PATIENT
  Sex: Male

DRUGS (3)
  1. SEROQUEL XR [Suspect]
     Indication: DEPRESSION
     Route: 048
     Dates: start: 20100913
  2. ZYPREXA [Concomitant]
  3. CRESTOR [Concomitant]

REACTIONS (2)
  - OROPHARYNGEAL PAIN [None]
  - NASAL CONGESTION [None]
